FAERS Safety Report 4657830-0 (Version None)
Quarter: 2005Q2

REPORT INFORMATION
  Report Type: 
  Country: None (occurrence: None)
  Receive Date: 20050510
  Receipt Date: 20041112
  Transmission Date: 20051028
  Serious: Yes (Other)
  Sender: FDA-Public Use
  Company Number: PHEH2004US12293

PATIENT
  Age: 66 Year
  Sex: Female

DRUGS (4)
  1. AREDIA [Suspect]
     Indication: MULTIPLE MYELOMA
     Dosage: 90 MG, Q 4 WEEKS
     Dates: start: 19980918, end: 20020314
  2. IMMUNOGLOBULINS [Concomitant]
     Indication: IMMUNOSUPPRESSION
     Dates: start: 20041201
  3. ZOMETA [Suspect]
     Indication: MULTIPLE MYELOMA
     Dosage: 4 MG, Q 4 WEEKS
     Route: 042
     Dates: start: 20020411, end: 20040129
  4. CLINDAMYCIN HYDROCHLORIDE [Concomitant]
     Indication: OSTEONECROSIS
     Dosage: 300 MG, TID
     Route: 065
     Dates: start: 20031113, end: 20040809

REACTIONS (7)
  - ANAEMIA [None]
  - BONE DEBRIDEMENT [None]
  - CORONARY ARTERY DISEASE [None]
  - DIABETES MELLITUS NON-INSULIN-DEPENDENT [None]
  - OSTEONECROSIS [None]
  - PLEURAL EFFUSION [None]
  - TOOTH EXTRACTION [None]
